FAERS Safety Report 12760354 (Version 1)
Quarter: 2016Q3

REPORT INFORMATION
  Report Type: Spontaneous
  Country: CH (occurrence: CH)
  Receive Date: 20160919
  Receipt Date: 20160919
  Transmission Date: 20161109
  Serious: Yes (Hospitalization, Other)
  Sender: FDA-Public Use
  Company Number: CH-ELI_LILLY_AND_COMPANY-CH201609003046

PATIENT
  Age: 35 Year
  Sex: Female
  Weight: 59 kg

DRUGS (10)
  1. CALCIMAGON D3 [Concomitant]
     Active Substance: CALCIUM\CHOLECALCIFEROL
     Indication: PRODUCT USED FOR UNKNOWN INDICATION
     Dosage: 1 DF, QD
     Route: 048
  2. ZYPREXA [Suspect]
     Active Substance: OLANZAPINE
     Dosage: 10 MG, QD
     Route: 048
     Dates: start: 20160503, end: 20160622
  3. ZYPREXA [Suspect]
     Active Substance: OLANZAPINE
     Dosage: 5 MG, QD
     Route: 048
     Dates: start: 20160628
  4. KOSIMA [Concomitant]
     Indication: CONTRACEPTION
     Dosage: UNK
     Dates: start: 20160615
  5. VENLAFAXIN [Suspect]
     Active Substance: VENLAFAXINE HYDROCHLORIDE
     Indication: SCHIZOAFFECTIVE DISORDER
     Dosage: 300 MG, QD
     Route: 048
     Dates: start: 20160503, end: 20160622
  6. ZYPREXA [Suspect]
     Active Substance: OLANZAPINE
     Indication: SCHIZOAFFECTIVE DISORDER
     Dosage: 7.5 MG, QD
     Route: 048
     Dates: start: 201510, end: 20160503
  7. POTASSIUM [Concomitant]
     Active Substance: POTASSIUM
     Indication: PRODUCT USED FOR UNKNOWN INDICATION
     Dosage: 1 DF, QD
     Route: 048
  8. PANTOPRAZOL [Concomitant]
     Active Substance: PANTOPRAZOLE SODIUM
     Indication: PRODUCT USED FOR UNKNOWN INDICATION
     Dosage: 1 DF, QD
     Route: 048
  9. MAGNESIOCARD [Concomitant]
     Active Substance: MAGNESIUM ASPARTATE HYDROCHLORIDE
     Indication: PRODUCT USED FOR UNKNOWN INDICATION
     Dosage: 1 DF, QD
     Route: 048
  10. VENLAFAXINE [Suspect]
     Active Substance: VENLAFAXINE HYDROCHLORIDE
     Indication: SCHIZOAFFECTIVE DISORDER
     Dosage: 150 MG, QD
     Route: 048
     Dates: start: 201510, end: 20160503

REACTIONS (9)
  - Hypokalaemia [Recovered/Resolved]
  - Haematoma [Unknown]
  - Hypophosphataemia [Unknown]
  - Hyponatraemia [Recovered/Resolved]
  - Rhabdomyolysis [Recovered/Resolved]
  - Hypomagnesaemia [Recovered/Resolved]
  - Facial bones fracture [Unknown]
  - Generalised tonic-clonic seizure [Not Recovered/Not Resolved]
  - Polydipsia [Unknown]

NARRATIVE: CASE EVENT DATE: 20160621
